FAERS Safety Report 5338120-X (Version None)
Quarter: 2007Q2

REPORT INFORMATION
  Report Type: 
  Country: None (occurrence: None)
  Receive Date: 20070530
  Receipt Date: 20070522
  Transmission Date: 20071010
  Serious: Yes (Hospitalization, Disabling, Other)
  Sender: FDA-Public Use
  Company Number: PHEH2007US03202

PATIENT
  Age: 69 Year
  Sex: Male
  Weight: 88.435 kg

DRUGS (2)
  1. INDOCIN [Concomitant]
     Indication: GOUT
     Dosage: UNK, UNK
     Dates: start: 20050101
  2. DIOVAN HCT [Suspect]
     Indication: HYPERTENSION
     Dosage: 320 MG, QD
     Dates: start: 20020101, end: 20070307

REACTIONS (10)
  - DECREASED APPETITE [None]
  - FATIGUE [None]
  - GAIT DISTURBANCE [None]
  - HYPERTENSION [None]
  - LUNG INFILTRATION [None]
  - METASTASES TO LUNG [None]
  - NEOPLASM MALIGNANT [None]
  - POLLAKIURIA [None]
  - RENAL CELL CARCINOMA STAGE UNSPECIFIED [None]
  - SURGERY [None]
